FAERS Safety Report 18354602 (Version 1)
Quarter: 2020Q4

REPORT INFORMATION
  Report Type: Spontaneous
  Country: US (occurrence: US)
  Receive Date: 20201006
  Receipt Date: 20201006
  Transmission Date: 20210114
  Serious: Yes (Hospitalization)
  Sender: FDA-Public Use
  Company Number: None

PATIENT
  Age: 75 Year
  Sex: Male
  Weight: 104 kg

DRUGS (1)
  1. GABAPENTIN (GABAPENTIN 600MG TAB) [Suspect]
     Active Substance: GABAPENTIN
     Indication: PAIN
     Route: 048
     Dates: start: 20180320, end: 20200107

REACTIONS (2)
  - Blood creatinine abnormal [None]
  - Acute kidney injury [None]

NARRATIVE: CASE EVENT DATE: 20191121
